FAERS Safety Report 6590707-2 (Version None)
Quarter: 2010Q1

REPORT INFORMATION
  Report Type: 
  Country: None (occurrence: None)
  Receive Date: 20100219
  Receipt Date: 20100211
  Transmission Date: 20100710
  Serious: Yes (Hospitalization, Other)
  Sender: FDA-Public Use
  Company Number: US-ABBOTT-10P-163-0625854-00

PATIENT
  Age: 67 Year
  Sex: Female

DRUGS (6)
  1. ZEMPLAR [Suspect]
     Indication: HYPERPARATHYROIDISM
     Dates: start: 20090301, end: 20100101
  2. ZEMPLAR [Suspect]
     Dates: start: 20100122
  3. GLIMEPIRIDE [Concomitant]
     Indication: TYPE 2 DIABETES MELLITUS
     Dosage: DAILY
  4. MICARDIS [Concomitant]
     Indication: HYPERTENSION
     Dosage: DAILY
  5. METOPROLOL TARTRATE [Concomitant]
     Indication: HYPERTENSION
     Dosage: DAILY
  6. TRIAMTERENE [Concomitant]
     Indication: HYPERTENSION
     Dosage: DAILY

REACTIONS (2)
  - INTERVERTEBRAL DISC PROTRUSION [None]
  - NECK PAIN [None]
